FAERS Safety Report 10078372 (Version 1)
Quarter: 2014Q1

REPORT INFORMATION
  Report Type: Spontaneous
  Country: US (occurrence: None)
  Receive Date: 20140327
  Receipt Date: 20140327
  Transmission Date: 20141002
  Serious: Yes (Other)
  Sender: FDA-Public Use
  Company Number: ADR-2008-4636

PATIENT
  Sex: Male

DRUGS (4)
  1. BACLOFEN INTRATHECAL [Suspect]
     Indication: MUSCLE SPASTICITY
     Route: 037
  2. FENTANYL INTRATHECAL 500 MCG/ML [Suspect]
  3. MORPHINE [Suspect]
  4. UNSPECIFIED ORAL MEDICATION [Suspect]

REACTIONS (5)
  - Inadequate analgesia [None]
  - Device connection issue [None]
  - Anxiety [None]
  - Abdominal adhesions [None]
  - Intestinal obstruction [None]
